FAERS Safety Report 7090866-1 (Version None)
Quarter: 2010Q4

REPORT INFORMATION
  Report Type: 
  Country: None (occurrence: None)
  Receive Date: 20101105
  Receipt Date: 20101105
  Transmission Date: 20110411
  Serious: Yes (Other)
  Sender: FDA-Public Use
  Company Number: None

PATIENT
  Age: 60 Year
  Sex: Female
  Weight: 63.5036 kg

DRUGS (2)
  1. CLINDAMYCIN [Suspect]
     Indication: ENDODONTIC PROCEDURE
     Dates: start: 20101025, end: 20101103
  2. CLINDAMYCIN [Suspect]
     Indication: INFECTION
     Dates: start: 20101025, end: 20101103

REACTIONS (14)
  - ASTHENIA [None]
  - BACK PAIN [None]
  - CHEST PAIN [None]
  - DIZZINESS [None]
  - DYSPEPSIA [None]
  - EAR PAIN [None]
  - INFLUENZA LIKE ILLNESS [None]
  - MALAISE [None]
  - OROPHARYNGEAL PAIN [None]
  - PAIN IN JAW [None]
  - SWOLLEN TONGUE [None]
  - TONGUE DISORDER [None]
  - TONGUE ULCERATION [None]
  - VOMITING [None]
